FAERS Safety Report 15392126 (Version 3)
Quarter: 2018Q4

REPORT INFORMATION
  Report Type: Spontaneous
  Country: US (occurrence: US)
  Receive Date: 20180917
  Receipt Date: 20181026
  Transmission Date: 20190204
  Serious: Yes (Hospitalization, Other)
  Sender: FDA-Public Use
  Company Number: US-PFIZER INC-2018372673

PATIENT
  Age: 47 Year
  Sex: Female
  Weight: 52.2 kg

DRUGS (8)
  1. CICLOPIROX. [Concomitant]
     Active Substance: CICLOPIROX
     Dosage: UNK UNK, 2X/DAY (APPLY TO THE AFFECTED AREA AND SURROUNDING AREAS OF SKIN)
     Route: 061
  2. ONDANSETRON HCL [Concomitant]
     Active Substance: ONDANSETRON HYDROCHLORIDE
     Dosage: 8 MG, AS NEEDED (1 TABLET EVERY 8 HOURS BY ORAL ROUTE AS NEEDED)
     Route: 048
  3. CLINDAMYCIN HCL [Suspect]
     Active Substance: CLINDAMYCIN HYDROCHLORIDE
     Indication: TOOTH INFECTION
     Dosage: 300 MG, 3X/DAY [Q8H FOR 7 DAYS]
     Route: 048
     Dates: start: 20180601
  4. VALTREX [Concomitant]
     Active Substance: VALACYCLOVIR HYDROCHLORIDE
     Dosage: 1 G, 2X/DAY (1 TABLET EVERY 12 HOURS BY ORAL ROUTE.)
     Route: 048
  5. CLINDAMYCIN HCL [Suspect]
     Active Substance: CLINDAMYCIN HYDROCHLORIDE
     Indication: ENDODONTIC PROCEDURE
     Dosage: 20 MG, UNK
     Dates: start: 20180616
  6. METRONIDAZOLE. [Concomitant]
     Active Substance: METRONIDAZOLE
     Dosage: 500 MG, 3X/DAY (1 TABLET EVERY 8 HOURS BY ORAL ROUTE WITH MEALS FOR 10 DAYS)
     Route: 048
  7. PROBIOTICS [Concomitant]
     Active Substance: PROBIOTICS NOS
     Dosage: 1 DF, DAILY
  8. VALACYCLOVIR [VALACICLOVIR] [Concomitant]
     Dosage: 1 G, 2X/DAY (EVERY 12 HOURS)
     Route: 048

REACTIONS (20)
  - Clostridium difficile infection [Not Recovered/Not Resolved]
  - Nausea [Unknown]
  - Pyrexia [Unknown]
  - Insomnia [Unknown]
  - Anxiety [Unknown]
  - Decreased appetite [Unknown]
  - Campylobacter gastroenteritis [Unknown]
  - Abdominal pain [Not Recovered/Not Resolved]
  - Abdominal distension [Unknown]
  - Diarrhoea [Recovering/Resolving]
  - Abdominal pain upper [Not Recovered/Not Resolved]
  - Abdominal discomfort [Unknown]
  - Vomiting [Unknown]
  - Dehydration [Not Recovered/Not Resolved]
  - Fatigue [Unknown]
  - Ill-defined disorder [Not Recovered/Not Resolved]
  - Mucous stools [Unknown]
  - Malaise [Not Recovered/Not Resolved]
  - Asthenia [Unknown]
  - Faeces soft [Unknown]

NARRATIVE: CASE EVENT DATE: 2018
